FAERS Safety Report 9258280 (Version 1)
Quarter: 2013Q2

REPORT INFORMATION
  Report Type: Spontaneous
  Country: JP (occurrence: None)
  Receive Date: 20130422
  Receipt Date: 20130422
  Transmission Date: 20140414
  Serious: Yes (Death)
  Sender: FDA-Public Use
  Company Number: SYM-2013-02998

PATIENT
  Age: 60 Year
  Sex: Male

DRUGS (3)
  1. FLUOROURACIL [Suspect]
     Indication: OESOPHAGEAL CARCINOMA RECURRENT
  2. CISPLATIN [Suspect]
     Indication: OESOPHAGEAL CARCINOMA RECURRENT
  3. DOCETAXEL [Suspect]
     Indication: OESOPHAGEAL CARCINOMA RECURRENT

REACTIONS (4)
  - Neoplasm recurrence [None]
  - Metastases to lymph nodes [None]
  - Metastases to liver [None]
  - Gastrointestinal disorder [None]
